FAERS Safety Report 6253874-6 (Version None)
Quarter: 2009Q3

REPORT INFORMATION
  Report Type: 
  Country: None (occurrence: None)
  Receive Date: 20090702
  Receipt Date: 20090622
  Transmission Date: 20100115
  Serious: Yes (Other)
  Sender: FDA-Public Use
  Company Number: PHHY2009GB25221

PATIENT
  Sex: Female

DRUGS (2)
  1. TEGRETOL [Suspect]
     Indication: EPILEPSY
     Dosage: 100 MG, TID
     Route: 048
  2. TEGRETOL [Suspect]
     Dosage: UNK
     Route: 048

REACTIONS (1)
  - ATRIAL FIBRILLATION [None]
